FAERS Safety Report 7137816-7 (Version None)
Quarter: 2010Q4

REPORT INFORMATION
  Report Type: 
  Country: None (occurrence: None)
  Receive Date: 20101206
  Receipt Date: 20101122
  Transmission Date: 20110411
  Serious: Yes (Other)
  Sender: FDA-Public Use
  Company Number: PHHY2010RO79630

PATIENT
  Sex: Female

DRUGS (3)
  1. EXFORGE [Suspect]
     Indication: HYPERTENSION
     Route: 048
  2. OSPEN [Concomitant]
     Dosage: 1000 UI X 4/DAY
  3. ASPIRIN [Concomitant]
     Dosage: 75 MG/DAY

REACTIONS (2)
  - METRORRHAGIA [None]
  - VERTIGO [None]
